FAERS Safety Report 12839553 (Version 5)
Quarter: 2017Q3

REPORT INFORMATION
  Report Type: Spontaneous
  Country: JP (occurrence: JP)
  Receive Date: 20161012
  Receipt Date: 20170809
  Transmission Date: 20171127
  Serious: Yes (Other)
  Sender: FDA-Public Use
  Company Number: JP-GLAXOSMITHKLINE-JP2016GSK148717

PATIENT
  Age: 26 Year
  Sex: Female
  Weight: 48 kg

DRUGS (4)
  1. VOLTARENE [Suspect]
     Active Substance: DICLOFENAC SODIUM
     Indication: PRODUCT USED FOR UNKNOWN INDICATION
     Route: 054
  2. LOXOPROFEN [Suspect]
     Active Substance: LOXOPROFEN
     Indication: HEADACHE
  3. CEFCAPENE PIVOXIL HYDROCHLORIDE [Concomitant]
     Active Substance: CEFCAPENE PIVOXIL HYDROCHLORIDE
     Indication: PYREXIA
  4. BUTALBITAL + PARACETAMOL [Concomitant]
     Indication: PRODUCT USED FOR UNKNOWN INDICATION

REACTIONS (12)
  - C-reactive protein increased [Unknown]
  - Inflammation [Unknown]
  - CSF cell count increased [Unknown]
  - Meningitis aseptic [Unknown]
  - White blood cell count increased [Unknown]
  - Total complement activity increased [Unknown]
  - Kernig^s sign [Unknown]
  - Generalised erythema [Unknown]
  - Nuchal rigidity [Unknown]
  - CSF glucose decreased [Unknown]
  - Lymph node palpable [Unknown]
  - Conjunctival hyperaemia [Unknown]
